FAERS Safety Report 7385128-9 (Version None)
Quarter: 2011Q1

REPORT INFORMATION
  Report Type: 
  Country: None (occurrence: None)
  Receive Date: 20110330
  Receipt Date: 20110328
  Transmission Date: 20110831
  Serious: Yes (Hospitalization)
  Sender: FDA-Public Use
  Company Number: FR-SANOFI-AVENTIS-2010SA005142

PATIENT
  Age: 75 Year
  Sex: Male

DRUGS (11)
  1. PLAVIX [Suspect]
     Route: 048
     Dates: start: 20080101, end: 20090201
  2. KARDEGIC [Suspect]
     Route: 048
     Dates: start: 20080101
  3. SPECIAFOLDINE [Concomitant]
     Route: 048
     Dates: start: 20090101, end: 20090301
  4. PARACETAMOL [Suspect]
     Indication: ANKYLOSING SPONDYLITIS
     Route: 048
     Dates: start: 20070101
  5. MOLSIDOMINE [Suspect]
     Route: 048
     Dates: start: 20080101
  6. COTAREG ^NOVARTIS^ [Concomitant]
     Route: 048
  7. PENTASA [Suspect]
     Indication: COLITIS
     Route: 048
     Dates: start: 20070101
  8. TRAMADOL [Suspect]
     Indication: ANKYLOSING SPONDYLITIS
     Route: 048
     Dates: start: 20070101
  9. BISOPROLOL [Suspect]
     Route: 048
     Dates: start: 20080101
  10. TAMSULOSIN HCL [Concomitant]
     Route: 048
  11. CORDARONE [Concomitant]
     Route: 048

REACTIONS (2)
  - GLOMERULONEPHRITIS MEMBRANOUS [None]
  - NEPHROTIC SYNDROME [None]
